FAERS Safety Report 24706997 (Version 1)
Quarter: 2024Q4

REPORT INFORMATION
  Report Type: Spontaneous
  Country: US (occurrence: US)
  Receive Date: 20241206
  Receipt Date: 20241206
  Transmission Date: 20250115
  Serious: No
  Sender: PFIZER
  Company Number: US-PFIZER INC-202400316197

PATIENT
  Age: 68 Year
  Sex: Female

DRUGS (7)
  1. IBRANCE [Suspect]
     Active Substance: PALBOCICLIB
     Dosage: 1 QD (ONCE A DAY), 21 DAYS ON 7 DAYS OFF
     Dates: start: 20220121, end: 20241202
  2. GABAPENTIN [Concomitant]
     Active Substance: GABAPENTIN
     Dosage: 300
  3. LISINOPRIL [Concomitant]
     Active Substance: LISINOPRIL
     Dosage: 10
  4. METHADONE [Concomitant]
     Active Substance: METHADONE HYDROCHLORIDE
     Dosage: 10
  5. VITAMIN D NOS [Concomitant]
     Active Substance: CHOLECALCIFEROL\ERGOCALCIFEROL
     Dosage: 100 IU
  6. LETROZOLE [Concomitant]
     Active Substance: LETROZOLE
     Dosage: 2.5
  7. BACLOFEN [Concomitant]
     Active Substance: BACLOFEN
     Dosage: 10 MG

REACTIONS (1)
  - Haemoglobin decreased [Unknown]

NARRATIVE: CASE EVENT DATE: 20241126
